FAERS Safety Report 8505393-1 (Version None)
Quarter: 2012Q2

REPORT INFORMATION
  Report Type: 
  Country: None (occurrence: None)
  Receive Date: 20120405
  Receipt Date: 20091022
  Transmission Date: 20120825
  Serious: Yes (Hospitalization)
  Sender: FDA-Public Use
  Company Number: PHEH2009US14301

PATIENT
  Sex: Female

DRUGS (2)
  1. RECLAST [Suspect]
  2. NARCOTICS (NARCOTICS) [Concomitant]

REACTIONS (1)
  - MYALGIA [None]
